FAERS Safety Report 7072951-3 (Version None)
Quarter: 2010Q4

REPORT INFORMATION
  Report Type: 
  Country: None (occurrence: None)
  Receive Date: 20101029
  Receipt Date: 20101022
  Transmission Date: 20110411
  Serious: Yes (Other)
  Sender: FDA-Public Use
  Company Number: FR-KINGPHARMUSA00001-K201000577

PATIENT
  Sex: Male

DRUGS (4)
  1. ALTACE [Suspect]
     Indication: HYPERTENSION
     Dosage: 5 MG, QD
     Route: 048
     Dates: start: 20100401, end: 20100101
  2. FLECAINIDE ACETATE [Suspect]
     Dosage: 110 MG, QD
  3. BISOPROLOL [Suspect]
     Dosage: 10 MG, QD
  4. SIMVASTATIN [Suspect]
     Dosage: UNK

REACTIONS (2)
  - ATRIAL FIBRILLATION [None]
  - PALPITATIONS [None]
